FAERS Safety Report 4544769-4 (Version None)
Quarter: 2004Q4

REPORT INFORMATION
  Report Type: 
  Country: None (occurrence: None)
  Receive Date: 20041230
  Receipt Date: 20041217
  Transmission Date: 20050328
  Serious: Yes (Death, Hospitalization, Other)
  Sender: FDA-Public Use
  Company Number: 2004096615

PATIENT
  Age: 69 Year
  Sex: Female

DRUGS (2)
  1. ACCUPRIL [Suspect]
     Indication: HYPERTENSION
     Dosage: 10 MG (10 MG, 1 IN 1 D), ORAL
     Route: 048
     Dates: start: 20020601
  2. DIMENHYDRINATE [Concomitant]

REACTIONS (3)
  - BRONCHOPNEUMONIA [None]
  - CEREBROVASCULAR ACCIDENT [None]
  - MULTI-ORGAN FAILURE [None]
